FAERS Safety Report 16689609 (Version 1)
Quarter: 2019Q3

REPORT INFORMATION
  Report Type: Spontaneous
  Country: CN (occurrence: CN)
  Receive Date: 20190809
  Receipt Date: 20190809
  Transmission Date: 20191004
  Serious: Yes (Hospitalization, Other)
  Sender: FDA-Public Use
  Company Number: CN-ASTRAZENECA-2019SF05648

PATIENT
  Age: 78 Year
  Sex: Male

DRUGS (3)
  1. TAGRISSO [Suspect]
     Active Substance: OSIMERTINIB
     Route: 048
     Dates: start: 201903
  2. IRESSA [Suspect]
     Active Substance: GEFITINIB
     Indication: PULMONARY MASS
     Route: 048
     Dates: start: 201709, end: 201807
  3. TAGRISSO [Suspect]
     Active Substance: OSIMERTINIB
     Route: 048
     Dates: start: 20180926, end: 201903

REACTIONS (11)
  - Feeding disorder [Not Recovered/Not Resolved]
  - Asthenia [Not Recovered/Not Resolved]
  - Somnolence [Not Recovered/Not Resolved]
  - Pleural effusion [Not Recovered/Not Resolved]
  - Drug resistance [Unknown]
  - Pruritus [Recovered/Resolved]
  - Hydrothorax [Unknown]
  - Gene mutation [Unknown]
  - Muscular weakness [Not Recovered/Not Resolved]
  - Decreased appetite [Not Recovered/Not Resolved]
  - Taste disorder [Not Recovered/Not Resolved]
